FAERS Safety Report 9352204 (Version 1)
Quarter: 2013Q2

REPORT INFORMATION
  Report Type: Spontaneous
  Country: US (occurrence: US)
  Receive Date: 20130617
  Receipt Date: 20130617
  Transmission Date: 20140414
  Serious: Yes (Death, Hospitalization, Other)
  Sender: FDA-Public Use
  Company Number: US-009507513-1106USA01853

PATIENT
  Sex: Female

DRUGS (2)
  1. FOSAMAX [Suspect]
     Route: 048
  2. ALENDRONATE SODIUM [Suspect]
     Route: 048

REACTIONS (4)
  - Femur fracture [Unknown]
  - Foot fracture [Unknown]
  - Pulmonary embolism [Unknown]
  - Myocardial infarction [Fatal]
